FAERS Safety Report 13186807 (Version 3)
Quarter: 2017Q1

REPORT INFORMATION
  Report Type: Report from Study
  Country: None (occurrence: US)
  Receive Date: 20170206
  Receipt Date: 20170323
  Transmission Date: 20170428
  Serious: Yes (Hospitalization, Other)
  Sender: FDA-Public Use
  Company Number: US-ABBVIE-17K-163-1853840-00

PATIENT
  Age: 63 Year
  Sex: Female

DRUGS (7)
  1. HUMIRA [Suspect]
     Active Substance: ADALIMUMAB
     Indication: COLITIS ULCERATIVE
     Dosage: LOADING DOSE
     Route: 058
     Dates: start: 20161229, end: 20161229
  2. HUMIRA [Suspect]
     Active Substance: ADALIMUMAB
     Indication: CROHN^S DISEASE
     Route: 058
     Dates: start: 20160723
  3. PREDNISONE. [Suspect]
     Active Substance: PREDNISONE
     Indication: COLITIS ULCERATIVE
     Route: 065
     Dates: start: 2015, end: 201701
  4. PREDNISONE. [Suspect]
     Active Substance: PREDNISONE
     Route: 065
     Dates: start: 201701, end: 20170307
  5. PREDNISONE. [Suspect]
     Active Substance: PREDNISONE
     Route: 065
     Dates: start: 20170308
  6. HUMIRA [Suspect]
     Active Substance: ADALIMUMAB
     Dosage: LOADING DOSE
     Route: 058
     Dates: start: 20170112, end: 20170112
  7. HUMIRA [Suspect]
     Active Substance: ADALIMUMAB
     Route: 058
     Dates: start: 20170126

REACTIONS (5)
  - Flushing [Not Recovered/Not Resolved]
  - Cataract [Not Recovered/Not Resolved]
  - Type 2 diabetes mellitus [Not Recovered/Not Resolved]
  - Urinary system x-ray abnormal [Unknown]
  - Colitis ulcerative [Recovered/Resolved]

NARRATIVE: CASE EVENT DATE: 201701
